FAERS Safety Report 8407597-5 (Version None)
Quarter: 2012Q2

REPORT INFORMATION
  Report Type: 
  Country: None (occurrence: None)
  Receive Date: 20120604
  Receipt Date: 20120525
  Transmission Date: 20120825
  Serious: Yes (Hospitalization)
  Sender: FDA-Public Use
  Company Number: US-US-EMD SERONO, INC.-7136173

PATIENT
  Sex: Female

DRUGS (4)
  1. LASIX [Concomitant]
     Indication: PRODUCT USED FOR UNKNOWN INDICATION
  2. METOPROLOL TARTRATE [Concomitant]
     Indication: HYPERTENSION
  3. REBIF [Suspect]
     Indication: MULTIPLE SCLEROSIS
     Route: 058
     Dates: start: 20110707
  4. FROVA [Concomitant]
     Indication: HEADACHE

REACTIONS (9)
  - SEXUAL DYSFUNCTION [None]
  - INJECTION SITE ERYTHEMA [None]
  - FATIGUE [None]
  - SLEEP DISORDER [None]
  - HYPERTENSION [None]
  - MULTIPLE SCLEROSIS RELAPSE [None]
  - DEPRESSION [None]
  - GAIT DISTURBANCE [None]
  - HEADACHE [None]
